FAERS Safety Report 18545106 (Version 1)
Quarter: 2020Q4

REPORT INFORMATION
  Report Type: Report from Study
  Country: US (occurrence: US)
  Receive Date: 20201125
  Receipt Date: 20201125
  Transmission Date: 20210114
  Serious: Yes (Other)
  Sender: FDA-Public Use
  Company Number: US-MYLANLABS-2019M1069069

PATIENT
  Age: 10 Month
  Sex: Male

DRUGS (4)
  1. FLUDARABINE [Suspect]
     Active Substance: FLUDARABINE PHOSPHATE
     Indication: BONE MARROW CONDITIONING REGIMEN
     Dosage: 160 MILLIGRAM/SQ. METER
     Route: 065
  2. ALEMTUZUMAB [Suspect]
     Active Substance: ALEMTUZUMAB
     Indication: BONE MARROW CONDITIONING REGIMEN
     Dosage: 1.5 MILLIGRAM/SQ. METER, ON DAYS -12 TO -10
     Route: 065
  3. BUSULFAN. [Suspect]
     Active Substance: BUSULFAN
     Indication: BONE MARROW CONDITIONING REGIMEN
     Dosage: 9.1 MG/KG IN EIGHT DOSES (CUMULATIVE BUSULFAN DOSE) CUMULATIVE AREA UNDER THE CURVE 31 MG*HR/L. D...
     Route: 065
  4. ALEMTUZUMAB [Suspect]
     Active Substance: ALEMTUZUMAB
     Dosage: 0.5 MILLIGRAM/KILOGRAM
     Route: 042

REACTIONS (1)
  - Venoocclusive liver disease [Recovered/Resolved]
